FAERS Safety Report 4479238-3 (Version None)
Quarter: 2004Q4

REPORT INFORMATION
  Report Type: 
  Country: None (occurrence: None)
  Receive Date: 20041019
  Receipt Date: 20041019
  Transmission Date: 20050328
  Serious: Yes (Hospitalization)
  Sender: FDA-Public Use
  Company Number: None

PATIENT
  Age: 9 Year
  Sex: Male
  Weight: 17 kg

DRUGS (6)
  1. PHENOBARBITAL TAB [Suspect]
     Dosage: 60 MG BID PO
     Route: 048
     Dates: end: 19040801
  2. CSA [Concomitant]
  3. FOLIC ACID [Concomitant]
  4. PROZAC [Concomitant]
  5. VALPORIC ACID [Concomitant]
  6. MEGASTEROL [Concomitant]

REACTIONS (6)
  - CONVULSION [None]
  - DIARRHOEA [None]
  - HYPOTENSION [None]
  - LETHARGY [None]
  - LOSS OF CONSCIOUSNESS [None]
  - RESPIRATORY DISORDER [None]
